FAERS Safety Report 5300308-1 (Version None)
Quarter: 2007Q2

REPORT INFORMATION
  Report Type: 
  Country: None (occurrence: None)
  Receive Date: 20070418
  Receipt Date: 20070405
  Transmission Date: 20071010
  Serious: Yes (Hospitalization)
  Sender: FDA-Public Use
  Company Number: PHHO2007TR06152

PATIENT
  Age: 42 Year
  Sex: Female

DRUGS (3)
  1. TELBIVUDINE VS LAMIVUDINE [Suspect]
     Indication: HEPATITIS B
     Dosage: DOUBLE BLIND
     Route: 048
     Dates: start: 20070323, end: 20070403
  2. SPIRONOLACTONE [Concomitant]
  3. FUROSEMIDE [Concomitant]

REACTIONS (1)
  - HYPONATRAEMIA [None]
